FAERS Safety Report 7950220-4 (Version None)
Quarter: 2011Q4

REPORT INFORMATION
  Report Type: 
  Country: None (occurrence: None)
  Receive Date: 20111130
  Receipt Date: 20111128
  Transmission Date: 20120403
  Serious: Yes (Hospitalization, Other)
  Sender: FDA-Public Use
  Company Number: US-VERTEX PHARMACEUTICALS INC.-AE-2011-002341

PATIENT
  Sex: Female

DRUGS (14)
  1. INCIVEK [Suspect]
     Indication: HEPATITIS C
     Dates: start: 20110719, end: 20111013
  2. LISINOPRIL [Concomitant]
  3. LORAZEPAM [Concomitant]
  4. INTERFERON [Concomitant]
     Indication: HEPATITIS C
     Dates: start: 20110719, end: 20111013
  5. SPIRONOLACTONE [Concomitant]
  6. PROCRIT [Concomitant]
  7. HYDROCHLOROTHIAZIDE [Concomitant]
  8. RIBAVIRIN [Concomitant]
     Indication: HEPATITIS C
     Dates: start: 20110719, end: 20111013
  9. ASPIRIN [Concomitant]
  10. ONDANSETRON [Concomitant]
  11. FUROSEMIDE [Concomitant]
  12. METFORMIN HCL [Concomitant]
  13. PREVACID [Concomitant]
  14. VITAMIN TAB [Concomitant]

REACTIONS (13)
  - FATIGUE [None]
  - NAUSEA [None]
  - RASH MACULO-PAPULAR [None]
  - PYREXIA [None]
  - ASCITES [None]
  - AURICULAR SWELLING [None]
  - PRURITUS [None]
  - MOUTH ULCERATION [None]
  - HEARING IMPAIRED [None]
  - HEPATIC CIRRHOSIS [None]
  - DRUG RASH WITH EOSINOPHILIA AND SYSTEMIC SYMPTOMS [None]
  - WEIGHT DECREASED [None]
  - RENAL FAILURE ACUTE [None]
